FAERS Safety Report 15436530 (Version 2)
Quarter: 2019Q1

REPORT INFORMATION
  Report Type: Spontaneous
  Country: GB (occurrence: GB)
  Receive Date: 20180927
  Receipt Date: 20190114
  Transmission Date: 20190417
  Serious: Yes (Other)
  Sender: FDA-Public Use
  Company Number: GB-PFIZER INC-2018382499

PATIENT
  Age: 49 Year
  Sex: Female

DRUGS (5)
  1. TURMERIC [CURCUMA LONGA RHIZOME] [Interacting]
     Active Substance: HERBALS\TURMERIC
     Dosage: UNK
  2. SULFASALAZINE. [Suspect]
     Active Substance: SULFASALAZINE
     Indication: RHEUMATOID ARTHRITIS
     Dosage: 500 MG, 1X/DAY
     Route: 048
     Dates: start: 20180613
  3. SULFASALAZINE. [Interacting]
     Active Substance: SULFASALAZINE
     Dosage: 1000 MG, 2X/DAY (INCREASED BY 500MG WEEKLY TO TARGET DOSE OF 1G TWICE A DAILY)
  4. SULFASALAZINE. [Interacting]
     Active Substance: SULFASALAZINE
     Dosage: 1500 MG, DAILY (1G IN THE MORNING AND 500MG AT NIGHT)
     Route: 048
     Dates: end: 20180713
  5. SILYBUM MARIANUM [Concomitant]
     Active Substance: DIETARY SUPPLEMENT\HERBALS\MILK THISTLE
     Dosage: UNK

REACTIONS (7)
  - Malaise [Unknown]
  - Potentiating drug interaction [Recovered/Resolved]
  - Rash generalised [Recovering/Resolving]
  - Alanine aminotransferase increased [Recovered/Resolved]
  - Glossodynia [Not Recovered/Not Resolved]
  - Mouth ulceration [Not Recovered/Not Resolved]
  - Oropharyngeal pain [Unknown]

NARRATIVE: CASE EVENT DATE: 20180709
